FAERS Safety Report 6996901-0 (Version None)
Quarter: 2010Q3

REPORT INFORMATION
  Report Type: 
  Country: None (occurrence: None)
  Receive Date: 20100918
  Receipt Date: 20090902
  Transmission Date: 20110219
  Serious: No
  Sender: FDA-Public Use
  Company Number: US-WYE-H10201209

PATIENT
  Sex: Female
  Weight: 135.75 kg

DRUGS (13)
  1. PRISTIQ [Suspect]
     Indication: BIPOLAR I DISORDER
     Route: 048
     Dates: start: 20090601
  2. SINGULAIR [Concomitant]
  3. XYZAL [Concomitant]
  4. ASMANEX TWISTHALER [Concomitant]
  5. ALBUTEROL [Concomitant]
  6. ALLI [Concomitant]
  7. LAMICTAL [Concomitant]
  8. KLONOPIN [Concomitant]
  9. PROVIGIL [Concomitant]
  10. TRAZODONE HCL [Concomitant]
  11. BUSPAR [Concomitant]
  12. NEXIUM [Concomitant]
  13. INVEGA [Concomitant]

REACTIONS (1)
  - MEDICATION RESIDUE [None]
